FAERS Safety Report 21914946 (Version 1)
Quarter: 2023Q1

REPORT INFORMATION
  Report Type: Spontaneous
  Country: BE (occurrence: BE)
  Receive Date: 20230126
  Receipt Date: 20230126
  Transmission Date: 20230418
  Serious: Yes (Other)
  Sender: FDA-Public Use
  Company Number: BE-CELLTRION INC.-2023BE001908

PATIENT

DRUGS (6)
  1. INFLIXIMAB [Suspect]
     Active Substance: INFLIXIMAB
     Indication: Crohn^s disease
     Dosage: 5 MG/KG EVERY 8 WEEKS FOR THE PAST }/ 4 MONTHS AT LEAST
  2. INFLIXIMAB [Suspect]
     Active Substance: INFLIXIMAB
     Dosage: IF NO REMISSION AT 4 WEEKS, REINFUSION AT 10 MG/KG
  3. INFLIXIMAB [Suspect]
     Active Substance: INFLIXIMAB
     Dosage: IF REMISSION WAS REACHED 4 WEEKS AFTER THE FIRST OR SECOND REINFUSION, INFLIXIMAB WAS CONTINUED AT 5
  4. AZATHIOPRINE [Suspect]
     Active Substance: AZATHIOPRINE
     Indication: Crohn^s disease
     Dosage: IMMUNOSUPPRESSANT THERAPY DOSES WERE STABLE FOR THE PAST 3 MONTHS OR MORE, AT LEAST 2MG/KG; OR THE H
  5. METHOTREXATE [Suspect]
     Active Substance: METHOTREXATE
     Indication: Crohn^s disease
     Dosage: IMMUNOSUPPRESSANT THERAPY DOSES WERE STABLE FOR THE PAST 3 MONTHS OR MORE, THE MINIMUM DOSE FOR ELIG
  6. MERCAPTOPURINE [Suspect]
     Active Substance: MERCAPTOPURINE
     Indication: Crohn^s disease
     Dosage: IMMUNOSUPPRESSANT THERAPY DOSES WERE STABLE FOR THE PAST 3 MONTHS OR MORE, THE MINIMUM DOSE FOR ELIG

REACTIONS (7)
  - Crohn^s disease [Unknown]
  - Neuralgia [Unknown]
  - Ischaemic stroke [Unknown]
  - Pneumonia [Unknown]
  - Viral pericarditis [Unknown]
  - Treatment failure [Unknown]
  - Off label use [Unknown]
